FAERS Safety Report 4324672-5 (Version None)
Quarter: 2004Q1

REPORT INFORMATION
  Report Type: 
  Country: None (occurrence: None)
  Receive Date: 20040322
  Receipt Date: 20040309
  Transmission Date: 20041129
  Serious: Yes (Disabling)
  Sender: FDA-Public Use
  Company Number: 2004200550FR

PATIENT
  Age: 90 Year
  Sex: Female
  Weight: 47 kg

DRUGS (7)
  1. AROMASIN [Suspect]
     Indication: BREAST CANCER
     Dosage: 25 MG, QD, ORAL
     Route: 048
     Dates: start: 20040204
  2. DI-ANTALVIC (DEXTROPROPOXYPHENE HYDROCHLORIDE) [Concomitant]
  3. COZAAR [Concomitant]
  4. AMIODARONE HCL [Concomitant]
  5. BISOPROLOL FUMARATE [Concomitant]
  6. FUROSEMIDE [Concomitant]
  7. LERCANIDIPINE [Concomitant]

REACTIONS (4)
  - NAUSEA [None]
  - PAIN [None]
  - VERTIGO [None]
  - VOMITING [None]
